FAERS Safety Report 16144843 (Version 1)
Quarter: 2019Q2

REPORT INFORMATION
  Report Type: Spontaneous
  Country: US (occurrence: US)
  Receive Date: 20190401
  Receipt Date: 20190401
  Transmission Date: 20190711
  Serious: Yes (Life-Threatening)
  Sender: FDA-Public Use
  Company Number: None

PATIENT
  Age: 24 Year
  Sex: Female
  Weight: 54 kg

DRUGS (2)
  1. CLARITIN [Concomitant]
     Active Substance: LORATADINE
  2. DEPO-PROVERA [Suspect]
     Active Substance: MEDROXYPROGESTERONE ACETATE
     Indication: DYSMENORRHOEA
     Dosage: ?          OTHER FREQUENCY:ONCE EVERY 3 MONTH;?
     Route: 030
     Dates: start: 20190102, end: 20190401

REACTIONS (6)
  - Vaginal haemorrhage [None]
  - Depression [None]
  - Menstruation irregular [None]
  - Libido decreased [None]
  - Suicidal ideation [None]
  - Mood swings [None]

NARRATIVE: CASE EVENT DATE: 20190117
